FAERS Safety Report 13583296 (Version 1)
Quarter: 2017Q2

REPORT INFORMATION
  Report Type: Report from Study
  Country: JP (occurrence: JP)
  Receive Date: 20170525
  Receipt Date: 20170525
  Transmission Date: 20170830
  Serious: Yes (Hospitalization)
  Sender: FDA-Public Use
  Company Number: JP-BAXTER-2017BAX021754

PATIENT
  Age: 61 Year
  Sex: Female

DRUGS (12)
  1. OBINUTUZUMAB [Suspect]
     Active Substance: OBINUTUZUMAB
     Dosage: ON DAY 1 OF CYCLES 2-8 (21-DAY CYCLES) OR CYCLES 2-6 (28-DAY CYCLES)
     Route: 042
  2. PREDNISONE. [Suspect]
     Active Substance: PREDNISONE
     Indication: NON-HODGKIN^S LYMPHOMA UNSPECIFIED HISTOLOGY INDOLENT
     Dosage: 6 CYCLES OF CHOP, 8 CYCLES OF CVP
     Route: 048
     Dates: start: 20130513
  3. DOXORUBICIN [Suspect]
     Active Substance: DOXORUBICIN
     Dosage: MOST RECENT DOSE PRIOR TO SERIOUS ADVERSE EVENT
     Route: 042
     Dates: start: 20130830
  4. ENDOXAN 1G [Suspect]
     Active Substance: CYCLOPHOSPHAMIDE
     Indication: NON-HODGKIN^S LYMPHOMA UNSPECIFIED HISTOLOGY INDOLENT
     Dosage: 6 CYCLES OF CHOP, 8 CYCLES OF CVP
     Route: 042
     Dates: start: 20130514
  5. ENDOXAN 1G [Suspect]
     Active Substance: CYCLOPHOSPHAMIDE
     Dosage: MOST RECENT DOSE PRIOR TO SERIOUS ADVERSE EVENT
     Route: 042
     Dates: start: 20130830
  6. OBINUTUZUMAB [Suspect]
     Active Substance: OBINUTUZUMAB
     Indication: NON-HODGKIN^S LYMPHOMA UNSPECIFIED HISTOLOGY INDOLENT
     Dosage: ON DAYS 1, 8 AND 15 OF CYCLE 1
     Route: 042
     Dates: start: 20130513
  7. OBINUTUZUMAB [Suspect]
     Active Substance: OBINUTUZUMAB
     Dosage: AT A DOSE CONCENTRATION OF 4 MG/ML IN 1000ML VOLUME, MOST RECENT DOSE PRIOR TO SERIOUS ADVERSE EVENT
     Route: 042
     Dates: start: 20150828
  8. PREDNISONE. [Suspect]
     Active Substance: PREDNISONE
     Dosage: MOST RECENT DOSE PRIOR TO SERIOUS ADVERSE EVENT
     Route: 048
     Dates: start: 20130902
  9. DOXORUBICIN [Suspect]
     Active Substance: DOXORUBICIN
     Indication: NON-HODGKIN^S LYMPHOMA UNSPECIFIED HISTOLOGY INDOLENT
     Dosage: 6 CYCLES OF CHOP
     Route: 042
     Dates: start: 20130514
  10. OBINUTUZUMAB [Suspect]
     Active Substance: OBINUTUZUMAB
     Dosage: IN RESPONDERS UNTIL DISEASE PROGRESSION FOR UPTO 2 YEARS
     Route: 042
  11. VINCRISTINE [Suspect]
     Active Substance: VINCRISTINE
     Indication: NON-HODGKIN^S LYMPHOMA UNSPECIFIED HISTOLOGY INDOLENT
     Dosage: 6 CYCLES OF CHOP, 8 CYCLES OF CVP
     Route: 040
     Dates: start: 20130514
  12. VINCRISTINE [Suspect]
     Active Substance: VINCRISTINE
     Dosage: MOST RECENT DOSE PRIOR TO SERIOUS ADVERSE EVENT
     Route: 040
     Dates: start: 20130830

REACTIONS (1)
  - Lung adenocarcinoma [Recovered/Resolved]

NARRATIVE: CASE EVENT DATE: 20170331
